FAERS Safety Report 26083309 (Version 1)
Quarter: 2025Q4

REPORT INFORMATION
  Report Type: Spontaneous
  Country: US (occurrence: None)
  Receive Date: 20251121
  Receipt Date: 20251121
  Transmission Date: 20260117
  Serious: Yes (Disabling, Other)
  Sender: FDA-CTU
  Company Number: None

PATIENT
  Age: 40 Year
  Sex: Female
  Weight: 110.22 kg

DRUGS (6)
  1. NEXPLANON [Suspect]
     Active Substance: ETONOGESTREL
  2. LISDEXAMFETAMINE DIMESYLATE [Concomitant]
     Active Substance: LISDEXAMFETAMINE DIMESYLATE
  3. Atentah [Concomitant]
  4. DIVALPROEX SODIUM [Concomitant]
     Active Substance: DIVALPROEX SODIUM
  5. VITAMIN B12 [Concomitant]
     Active Substance: CYANOCOBALAMIN
  6. MAGNESIUM [Concomitant]
     Active Substance: MAGNESIUM

REACTIONS (8)
  - Pain in extremity [None]
  - Medical device site pain [None]
  - Implant site swelling [None]
  - Implant site pain [None]
  - Movement disorder [None]
  - Loss of personal independence in daily activities [None]
  - Mobility decreased [None]
  - Radiculopathy [None]

NARRATIVE: CASE EVENT DATE: 20251115
